FAERS Safety Report 15747799 (Version 1)
Quarter: 2018Q4

REPORT INFORMATION
  Report Type: Spontaneous
  Country: US (occurrence: US)
  Receive Date: 20181221
  Receipt Date: 20181221
  Transmission Date: 20190205
  Serious: Yes (Hospitalization, Other)
  Sender: FDA-Public Use
  Company Number: US-JNJFOC-20181139229

PATIENT
  Age: 57 Year
  Sex: Male

DRUGS (3)
  1. IMBRUVICA [Suspect]
     Active Substance: IBRUTINIB
     Indication: MANTLE CELL LYMPHOMA
     Route: 048
     Dates: start: 201709
  2. FERROUS SULFATE. [Suspect]
     Active Substance: FERROUS SULFATE
     Indication: ANAEMIA OF CHRONIC DISEASE
     Route: 065
  3. IMBRUVICA [Suspect]
     Active Substance: IBRUTINIB
     Indication: MANTLE CELL LYMPHOMA
     Route: 048
     Dates: start: 201705, end: 20170904

REACTIONS (10)
  - Pneumonia [Unknown]
  - Iron deficiency anaemia [Unknown]
  - Malignant pleural effusion [Unknown]
  - Adverse drug reaction [Unknown]
  - White blood cell count decreased [Unknown]
  - Pericardial effusion [Unknown]
  - Haematuria [Unknown]
  - Rash generalised [Unknown]
  - Sepsis [Unknown]
  - Urinary tract infection [Unknown]

NARRATIVE: CASE EVENT DATE: 2017
